FAERS Safety Report 9913017 (Version 2)
Quarter: 2014Q1

REPORT INFORMATION
  Report Type: Spontaneous
  Country: US (occurrence: US)
  Receive Date: 20140220
  Receipt Date: 20140328
  Transmission Date: 20141002
  Serious: No
  Sender: FDA-Public Use
  Company Number: US-PFIZER INC-2014045292

PATIENT
  Age: 83 Year
  Sex: Female

DRUGS (2)
  1. PREMARIN [Suspect]
     Dosage: UNK
  2. MENEST [Suspect]
     Dosage: UNK

REACTIONS (6)
  - Hot flush [Unknown]
  - Swollen tongue [Unknown]
  - Pharyngeal oedema [Unknown]
  - Feeling cold [Unknown]
  - Headache [Unknown]
  - Feeling abnormal [Unknown]
